FAERS Safety Report 16635034 (Version 1)
Quarter: 2019Q3

REPORT INFORMATION
  Report Type: Spontaneous
  Country: US (occurrence: US)
  Receive Date: 20190726
  Receipt Date: 20190726
  Transmission Date: 20191004
  Serious: No
  Sender: FDA-Public Use
  Company Number: US-CURIUM-201900307

PATIENT
  Age: 7 Year
  Sex: Female

DRUGS (2)
  1. LANTHEUS GENERATOR (PERTECHNETATE (99MTC) SODIUM) [Concomitant]
     Indication: RENAL SCAN
     Route: 065
     Dates: start: 2019, end: 2019
  2. TECHNESCAN MAG3 [Suspect]
     Active Substance: TECHNETIUM TC-99M TIATIDE
     Indication: RENAL SCAN
     Route: 065

REACTIONS (1)
  - Renal scan abnormal [Recovered/Resolved]

NARRATIVE: CASE EVENT DATE: 2019
